FAERS Safety Report 5412175-6 (Version None)
Quarter: 2007Q3

REPORT INFORMATION
  Report Type: 
  Country: None (occurrence: None)
  Receive Date: 20070713
  Receipt Date: 20070517
  Transmission Date: 20080115
  Serious: No
  Sender: FDA-Public Use
  Company Number: 2007SP001839

PATIENT
  Age: 80 Year
  Sex: Female
  Weight: 58.9676 kg

DRUGS (8)
  1. LUNESTA [Suspect]
     Indication: INSOMNIA
     Dosage: 3 MG;HS;ORAL
     Route: 048
     Dates: start: 20060101, end: 20060101
  2. ATORVASTATIN CALCIUM [Concomitant]
  3. FOSAMAX [Concomitant]
  4. SEROQUEL [Concomitant]
  5. ASPIRIN [Concomitant]
  6. ACETAMINOPHEN [Concomitant]
  7. CALCIUM [Concomitant]
  8. VITAMIN CAP [Concomitant]

REACTIONS (1)
  - MIDDLE INSOMNIA [None]
